FAERS Safety Report 5892262-9 (Version None)
Quarter: 2008Q3

REPORT INFORMATION
  Report Type: 
  Country: None (occurrence: None)
  Receive Date: 20080919
  Receipt Date: 20080908
  Transmission Date: 20090109
  Serious: Yes (Hospitalization, Other)
  Sender: FDA-Public Use
  Company Number: OXP20080002

PATIENT
  Age: 82 Year
  Sex: Male

DRUGS (11)
  1. OXAPROZIN [Suspect]
     Dosage: 18 PILLS,
     Dates: start: 20080718, end: 20080801
  2. OXCARBAZAPINE 600 MG [Concomitant]
  3. FOLIC ACID [Concomitant]
  4. LISINOPRIL [Concomitant]
  5. METOPROLOL TARTRATE [Concomitant]
  6. LOW DOSAGE ASPIRIN [Concomitant]
  7. GLUCOPHAGE XR [Concomitant]
  8. CRESTOR [Concomitant]
  9. SPIRIVA [Concomitant]
  10. CARTIA XT [Concomitant]
  11. CILOSTAZOL [Concomitant]

REACTIONS (4)
  - DRUG DISPENSING ERROR [None]
  - GASTROINTESTINAL HAEMORRHAGE [None]
  - PETIT MAL EPILEPSY [None]
  - WRONG DRUG ADMINISTERED [None]
